FAERS Safety Report 5334443-9 (Version None)
Quarter: 2007Q2

REPORT INFORMATION
  Report Type: 
  Country: None (occurrence: None)
  Receive Date: 20070525
  Receipt Date: 20070516
  Transmission Date: 20071010
  Serious: Yes (Life-Threatening, Hospitalization, Disabling, Other)
  Sender: FDA-Public Use
  Company Number: MX-JNJFOC-20070504238

PATIENT
  Age: 39 Year
  Sex: Female
  Weight: 47 kg

DRUGS (1)
  1. REMICADE [Suspect]
     Indication: RHEUMATOID ARTHRITIS
     Route: 042

REACTIONS (2)
  - PNEUMONIA [None]
  - PULMONARY TUBERCULOSIS [None]
